FAERS Safety Report 19505843 (Version 1)
Quarter: 2021Q3

REPORT INFORMATION
  Report Type: Spontaneous
  Country: IR (occurrence: IR)
  Receive Date: 20210708
  Receipt Date: 20210708
  Transmission Date: 20211014
  Serious: Yes (Hospitalization, Other)
  Sender: FDA-Public Use
  Company Number: IR-PFIZER INC-2021767367

PATIENT
  Age: 6 Year
  Sex: Female

DRUGS (4)
  1. HYDROCORTISONE SODIUM SUCCINATE [Suspect]
     Active Substance: HYDROCORTISONE SODIUM SUCCINATE
     Indication: SYSTEMIC LUPUS ERYTHEMATOSUS
     Dosage: UNK
  2. AMIKACIN. [Concomitant]
     Active Substance: AMIKACIN
     Dosage: UNK
  3. PULMICORT TURBUHALER [Suspect]
     Active Substance: BUDESONIDE
     Indication: SYSTEMIC LUPUS ERYTHEMATOSUS
     Dosage: UNK
  4. PREDNISOLONE. [Suspect]
     Active Substance: PREDNISOLONE
     Indication: SYSTEMIC LUPUS ERYTHEMATOSUS
     Dosage: 5 MG, 1X/DAY

REACTIONS (4)
  - Respiratory distress [Recovered/Resolved]
  - Aspergillus infection [Recovered/Resolved]
  - Respiratory acidosis [Recovered/Resolved]
  - Bronchopulmonary aspergillosis [Recovered/Resolved]

NARRATIVE: CASE EVENT DATE: 201809
